FAERS Safety Report 12297967 (Version 1)
Quarter: 2016Q2

REPORT INFORMATION
  Report Type: Spontaneous
  Country: US (occurrence: US)
  Receive Date: 20160422
  Receipt Date: 20160422
  Transmission Date: 20160815
  Serious: Yes (Death)
  Sender: FDA-Public Use
  Company Number: US-ACTELION-A-US2016-134902

PATIENT
  Age: 46 Year
  Sex: Female

DRUGS (12)
  1. PROAIR HFA [Concomitant]
     Active Substance: ALBUTEROL SULFATE
  2. LASIX [Concomitant]
     Active Substance: FUROSEMIDE
  3. ZINC [Concomitant]
     Active Substance: ZINC\ZINC CHLORIDE
  4. ALDACTONE [Concomitant]
     Active Substance: SPIRONOLACTONE
  5. ADCIRCA [Concomitant]
     Active Substance: TADALAFIL
  6. MAG-OX [Concomitant]
     Active Substance: MAGNESIUM OXIDE
  7. B VITAMIN COMP [Concomitant]
  8. WARFARIN [Concomitant]
     Active Substance: WARFARIN
  9. OPSUMIT [Suspect]
     Active Substance: MACITENTAN
     Indication: PULMONARY ARTERIAL HYPERTENSION
     Dosage: 10 MG, QD
     Route: 048
  10. PREDNISONE. [Concomitant]
     Active Substance: PREDNISONE
  11. CIPRO [Concomitant]
     Active Substance: CIPROFLOXACIN HYDROCHLORIDE
  12. SERTRALINE [Concomitant]
     Active Substance: SERTRALINE HYDROCHLORIDE

REACTIONS (1)
  - Respiratory arrest [Fatal]

NARRATIVE: CASE EVENT DATE: 20160411
